FAERS Safety Report 8180956-4 (Version None)
Quarter: 2012Q1

REPORT INFORMATION
  Report Type: 
  Country: None (occurrence: None)
  Receive Date: 20120302
  Receipt Date: 20120224
  Transmission Date: 20120608
  Serious: Yes (Hospitalization)
  Sender: FDA-Public Use
  Company Number: US-PFIZER INC-2012014648

PATIENT
  Sex: Female

DRUGS (12)
  1. ADRIAMYCIN PFS [Suspect]
     Indication: ENDOMETRIAL CANCER
     Dosage: 105 MG, UNK
     Route: 042
     Dates: start: 20111203
  2. FLUNISOLIDE [Concomitant]
     Dosage: UNK
     Dates: start: 20111101
  3. CARTIA XT [Concomitant]
     Dosage: UNK
     Dates: start: 20101201
  4. NEXIUM [Concomitant]
     Dosage: UNK
     Dates: start: 20101001
  5. ALBUTEROL [Concomitant]
     Dosage: UNK
     Dates: start: 19800101
  6. METOPROLOL TARTRATE [Concomitant]
     Dosage: UNK
     Dates: start: 20101201
  7. TRAMADOL [Concomitant]
     Dosage: UNK
     Dates: start: 20060101
  8. PERI-COLACE [Concomitant]
  9. FLOVENT [Concomitant]
     Dosage: UNK
     Dates: start: 19800101
  10. ASPIRIN [Concomitant]
     Dosage: UNK
     Dates: start: 20101201
  11. VOLTAREN [Concomitant]
     Dosage: UNK
     Dates: start: 20041101
  12. DOXYCYCLINE [Concomitant]
     Dosage: UNK
     Dates: start: 20110901

REACTIONS (5)
  - STOMATITIS [None]
  - DYSPNOEA [None]
  - CONFUSIONAL STATE [None]
  - PNEUMONIA [None]
  - HYPONATRAEMIA [None]
